FAERS Safety Report 7432264-4 (Version None)
Quarter: 2011Q2

REPORT INFORMATION
  Report Type: 
  Country: None (occurrence: None)
  Receive Date: 20110422
  Receipt Date: 20110411
  Transmission Date: 20111010
  Serious: Yes (Hospitalization, Other)
  Sender: FDA-Public Use
  Company Number: US-JNJFOC-20090502502

PATIENT
  Age: 16 Year
  Sex: Female

DRUGS (6)
  1. REMICADE [Suspect]
     Indication: CROHN'S DISEASE
     Route: 042
  2. MESALAMINE [Concomitant]
     Indication: CROHN'S DISEASE
  3. URSODIOL [Concomitant]
     Indication: PORTAL HYPERTENSION
  4. IMURAN [Concomitant]
     Indication: CROHN'S DISEASE
  5. TRIENTINE [Concomitant]
     Indication: PORTAL HYPERTENSION
  6. NADOLOL [Concomitant]
     Indication: PORTAL HYPERTENSION

REACTIONS (3)
  - EPSTEIN-BARR VIRUS ASSOCIATED LYMPHOPROLIFERATIVE DISORDER [None]
  - CARDIAC MURMUR [None]
  - PULMONARY OEDEMA [None]
